APPROVED DRUG PRODUCT: BUDESONIDE
Active Ingredient: BUDESONIDE
Strength: 3MG
Dosage Form/Route: CAPSULE, DELAYED RELEASE;ORAL
Application: A206623 | Product #001 | TE Code: AB
Applicant: DR REDDYS LABORATORIES SA
Approved: Apr 8, 2016 | RLD: No | RS: No | Type: RX